FAERS Safety Report 24068015 (Version 1)
Quarter: 2024Q3

REPORT INFORMATION
  Report Type: Spontaneous
  Country: IT (occurrence: IT)
  Receive Date: 20240710
  Receipt Date: 20240710
  Transmission Date: 20241017
  Serious: Yes (Hospitalization, Other)
  Sender: NOVITIUM PHARMA
  Company Number: IT-NOVITIUMPHARMA-2024ITNVP01181

PATIENT
  Age: 66 Year
  Sex: Female

DRUGS (6)
  1. DIGOXIN [Suspect]
     Active Substance: DIGOXIN
     Indication: Atrial fibrillation
  2. BISOPROLOL FUMARATE [Suspect]
     Active Substance: BISOPROLOL FUMARATE
     Indication: Hypertension
  3. RAMIPRIL [Concomitant]
     Active Substance: RAMIPRIL
     Indication: Hypertension
  4. SPIRONOLACTONE [Concomitant]
     Active Substance: SPIRONOLACTONE
     Indication: Hypertension
  5. FUROSEMIDE [Concomitant]
     Active Substance: FUROSEMIDE
     Indication: Hypertension
  6. PRAVASTATIN [Concomitant]
     Active Substance: PRAVASTATIN
     Indication: Hypertension

REACTIONS (3)
  - BRASH syndrome [Unknown]
  - Toxicity to various agents [Unknown]
  - Overdose [Unknown]
